FAERS Safety Report 11433322 (Version 1)
Quarter: 2015Q3

REPORT INFORMATION
  Report Type: Spontaneous
  Country: US (occurrence: US)
  Receive Date: 20150830
  Receipt Date: 20150830
  Transmission Date: 20151125
  Serious: Yes (Other)
  Sender: FDA-Public Use
  Company Number: US-HOSPIRA-2985441

PATIENT

DRUGS (6)
  1. ISOFLURANE. [Concomitant]
     Active Substance: ISOFLURANE
     Indication: ANAESTHESIA PROCEDURE
  2. FENTANYL. [Concomitant]
     Active Substance: FENTANYL
     Indication: ANAESTHESIA PROCEDURE
  3. DEXMEDETOMIDINE HYDROCHLORIDE. [Suspect]
     Active Substance: DEXMEDETOMIDINE HYDROCHLORIDE
     Indication: ANALGESIC THERAPY
     Dosage: 0.5 MCG/KG/HR, CONTINUOUS FOR NO LONGER THAN 24 HOURS
     Route: 041
  4. DEXMEDETOMIDINE HYDROCHLORIDE. [Suspect]
     Active Substance: DEXMEDETOMIDINE HYDROCHLORIDE
     Indication: SEDATIVE THERAPY
     Dosage: 0.5 MCG/KG/HR, CONTINUOUS FOR NO LONGER THAN 24 HOURS
     Route: 041
  5. DEXMEDETOMIDINE HYDROCHLORIDE. [Suspect]
     Active Substance: DEXMEDETOMIDINE HYDROCHLORIDE
     Indication: ANALGESIC THERAPY
     Dosage: 0.5 MCG/KG/HR, CONTINUOUS FOR NO LONGER THAN 24 HOURS
     Route: 041
  6. DEXMEDETOMIDINE HYDROCHLORIDE. [Suspect]
     Active Substance: DEXMEDETOMIDINE HYDROCHLORIDE
     Indication: ANALGESIC THERAPY
     Dosage: LOADING DOSE OVER 10 MINUTES
     Route: 042

REACTIONS (3)
  - Drug administered to patient of inappropriate age [Recovered/Resolved]
  - Atrioventricular block complete [Recovered/Resolved]
  - Bradycardia [Recovered/Resolved]
